FAERS Safety Report 6302346-9 (Version None)
Quarter: 2009Q3

REPORT INFORMATION
  Report Type: 
  Country: None (occurrence: None)
  Receive Date: 20090810
  Receipt Date: 20090806
  Transmission Date: 20100115
  Serious: Yes (Death, Hospitalization)
  Sender: FDA-Public Use
  Company Number: CA-ROXANE LABORATORIES, INC.-2009-RO-00786RO

PATIENT
  Age: 8 Month
  Sex: Male

DRUGS (2)
  1. DEXAMETHASONE [Suspect]
     Indication: MYELITIS
  2. IMMUNE GLOBULINS [Suspect]
     Route: 042

REACTIONS (4)
  - DEATH [None]
  - DRUG INEFFECTIVE [None]
  - NEUROMYOPATHY [None]
  - NOSOCOMIAL INFECTION [None]
